FAERS Safety Report 6426859-4 (Version None)
Quarter: 2009Q4

REPORT INFORMATION
  Report Type: 
  Country: None (occurrence: None)
  Receive Date: 20091104
  Receipt Date: 20091028
  Transmission Date: 20100525
  Serious: Yes (Other)
  Sender: FDA-Public Use
  Company Number: IT-ABBOTT-09P-083-0598149-00

PATIENT
  Sex: Female

DRUGS (5)
  1. DEPAKIN [Suspect]
     Indication: DRUG USE FOR UNKNOWN INDICATION
     Route: 048
     Dates: start: 20070801
  2. ALPRAZOLAM [Suspect]
     Indication: OVERDOSE
     Route: 048
     Dates: start: 20090816, end: 20090816
  3. ALPRAZOLAM [Suspect]
     Indication: SUICIDE ATTEMPT
  4. AUGMENTIN [Concomitant]
     Indication: DRUG USE FOR UNKNOWN INDICATION
     Route: 065
  5. PATROL [Concomitant]
     Indication: DRUG USE FOR UNKNOWN INDICATION
     Route: 065

REACTIONS (1)
  - SUICIDE ATTEMPT [None]
